APPROVED DRUG PRODUCT: VARDENAFIL HYDROCHLORIDE
Active Ingredient: VARDENAFIL HYDROCHLORIDE
Strength: EQ 2.5MG BASE
Dosage Form/Route: TABLET;ORAL
Application: A204632 | Product #001 | TE Code: AB
Applicant: MACLEODS PHARMACEUTICALS LTD
Approved: Oct 22, 2019 | RLD: No | RS: No | Type: RX